FAERS Safety Report 10273893 (Version 2)
Quarter: 2014Q3

REPORT INFORMATION
  Report Type: Spontaneous
  Country: FR (occurrence: FR)
  Receive Date: 20140702
  Receipt Date: 20140806
  Transmission Date: 20150326
  Serious: Yes (Hospitalization, Other)
  Sender: FDA-Public Use
  Company Number: FR-BRISTOL-MYERS SQUIBB COMPANY-21085618

PATIENT
  Age: 63 Year
  Sex: Female

DRUGS (22)
  1. ATORVASTATIN [Concomitant]
     Active Substance: ATORVASTATIN
  2. NOVONORM [Concomitant]
     Active Substance: REPAGLINIDE
  3. ARANESP [Concomitant]
     Active Substance: DARBEPOETIN ALFA
  4. CALCIUM FOLINATE [Concomitant]
     Active Substance: LEUCOVORIN CALCIUM
  5. VISIPAQUE [Suspect]
     Active Substance: IODIXANOL
     Route: 042
     Dates: start: 20140509
  6. KAYEXALATE [Concomitant]
     Active Substance: SODIUM POLYSTYRENE SULFONATE
  7. SPIRIVA [Concomitant]
     Active Substance: TIOTROPIUM BROMIDE MONOHYDRATE
  8. VENOFER [Concomitant]
     Active Substance: IRON SUCROSE
  9. CEFAZOLIN SODIUM. [Suspect]
     Active Substance: CEFAZOLIN SODIUM
     Route: 042
     Dates: start: 20140509, end: 20140510
  10. DEDROGYL [Concomitant]
     Active Substance: CALCIFEDIOL
  11. DEPAKOTE [Concomitant]
     Active Substance: DIVALPROEX SODIUM
  12. INDACATEROL MALEATE [Concomitant]
     Active Substance: INDACATEROL MALEATE
  13. AERIUS [Suspect]
     Active Substance: DESLORATADINE
     Route: 048
     Dates: start: 20140514, end: 20140520
  14. QUETIAPINE FUMARATE. [Concomitant]
     Active Substance: QUETIAPINE FUMARATE
  15. CARDENSIEL [Concomitant]
     Active Substance: BISOPROLOL FUMARATE
  16. CALCIDIA [Concomitant]
     Active Substance: CALCIUM POLYCARBOPHIL
  17. CALCIUM ACETATE. [Concomitant]
     Active Substance: CALCIUM ACETATE
     Dosage: 1 DF= 6 PASTILLES DAILY
  18. LANTUS [Concomitant]
     Active Substance: INSULIN GLARGINE
  19. CHOLECALCIFEROL [Concomitant]
     Active Substance: CHOLECALCIFEROL
  20. COUMADINE [Suspect]
     Active Substance: WARFARIN SODIUM
     Route: 048
     Dates: start: 20140514, end: 20140519
  21. FUROSEMIDE. [Concomitant]
     Active Substance: FUROSEMIDE
  22. KARDEGIC [Concomitant]
     Active Substance: ASPIRIN LYSINE

REACTIONS (1)
  - Rash maculo-papular [Recovered/Resolved]

NARRATIVE: CASE EVENT DATE: 20140519
